FAERS Safety Report 14608833 (Version 1)
Quarter: 2018Q1

REPORT INFORMATION
  Report Type: Spontaneous
  Country: JP (occurrence: JP)
  Receive Date: 20180307
  Receipt Date: 20180307
  Transmission Date: 20180509
  Serious: Yes (Life-Threatening, Other)
  Sender: FDA-Public Use
  Company Number: JP-PFIZER INC-2018004133

PATIENT
  Sex: Male
  Weight: 47 kg

DRUGS (5)
  1. CEFEPIME [Suspect]
     Active Substance: CEFEPIME HYDROCHLORIDE
     Dosage: 2 G, TWICE DAILY
     Route: 041
     Dates: start: 20180104, end: 20180104
  2. VFEND [Suspect]
     Active Substance: VORICONAZOLE
     Indication: FUNGAL INFECTION
     Dosage: 300 MG, DAILY
     Route: 048
     Dates: start: 20171229, end: 20171229
  3. VFEND [Suspect]
     Active Substance: VORICONAZOLE
     Dosage: 400 MG, DAILY
     Route: 048
     Dates: start: 20171231, end: 20180104
  4. CEFEPIME [Suspect]
     Active Substance: CEFEPIME HYDROCHLORIDE
     Indication: PNEUMONIA
     Dosage: 1 G, TWICE DAILY
     Route: 041
     Dates: start: 20171230, end: 20180103
  5. VFEND [Suspect]
     Active Substance: VORICONAZOLE
     Dosage: 500 MG, DAILY
     Route: 048
     Dates: start: 20171230, end: 20171230

REACTIONS (8)
  - Liver function test abnormal [Unknown]
  - Somnolence [Unknown]
  - Restlessness [Unknown]
  - Altered state of consciousness [Recovered/Resolved]
  - Delirium [Recovered/Resolved]
  - Communication disorder [Recovered/Resolved]
  - Confusional state [Unknown]
  - Hyperkinesia [Unknown]

NARRATIVE: CASE EVENT DATE: 201801
